FAERS Safety Report 9782777 (Version 1)
Quarter: 2013Q4

REPORT INFORMATION
  Report Type: Spontaneous
  Country: US (occurrence: US)
  Receive Date: 20131226
  Receipt Date: 20131226
  Transmission Date: 20140711
  Serious: No
  Sender: FDA-Public Use
  Company Number: US-ABBVIE-13P-163-1090393-00

PATIENT
  Age: 80 Year
  Sex: Male

DRUGS (2)
  1. LUPRON DEPOT [Suspect]
     Indication: PROSTATE CANCER
     Dates: start: 2009, end: 2010
  2. LUPRON DEPOT [Suspect]
     Dates: start: 201208

REACTIONS (1)
  - Prostatic specific antigen increased [Not Recovered/Not Resolved]
